FAERS Safety Report 6144545-5 (Version None)
Quarter: 2009Q2

REPORT INFORMATION
  Report Type: 
  Country: None (occurrence: None)
  Receive Date: 20090406
  Receipt Date: 20090330
  Transmission Date: 20091009
  Serious: Yes (Other)
  Sender: FDA-Public Use
  Company Number: PHHY2009DE12030

PATIENT
  Age: 68 Year
  Sex: Male

DRUGS (1)
  1. ZOLEDRONIC ACID [Suspect]
     Dosage: 4 MG EVERY 4 WEEKS
     Route: 042
     Dates: start: 20050201

REACTIONS (8)
  - ANAESTHESIA [None]
  - MULTIPLE MYELOMA [None]
  - ORAL DYSAESTHESIA [None]
  - ORAL SURGERY [None]
  - OSTEONECROSIS [None]
  - PAIN [None]
  - SWELLING [None]
  - TOOTH EXTRACTION [None]
